FAERS Safety Report 11737638 (Version 1)
Quarter: 2015Q4

REPORT INFORMATION
  Report Type: Spontaneous
  Country: US (occurrence: US)
  Receive Date: 20151110
  Receipt Date: 20151110
  Transmission Date: 20160304
  Serious: No
  Sender: FDA-Public Use
  Company Number: US-ELI_LILLY_AND_COMPANY-US201207003700

PATIENT
  Sex: Female

DRUGS (2)
  1. FORTEO [Suspect]
     Active Substance: TERIPARATIDE
     Indication: OSTEOPOROSIS
     Dosage: 20 UG, QD
  2. FORTEO [Suspect]
     Active Substance: TERIPARATIDE
     Dosage: 20 UG, QD

REACTIONS (16)
  - Myalgia [Unknown]
  - Back pain [Unknown]
  - Muscle spasms [Unknown]
  - Malaise [Unknown]
  - Contusion [Unknown]
  - Balance disorder [Unknown]
  - Intentional product misuse [Recovered/Resolved]
  - Sensory loss [Unknown]
  - Nephrolithiasis [Not Recovered/Not Resolved]
  - Injection site erythema [Unknown]
  - Arthralgia [Unknown]
  - Bone pain [Unknown]
  - Pain in extremity [Unknown]
  - Musculoskeletal disorder [Unknown]
  - Hypertension [Unknown]
  - Injection site bruising [Unknown]
